FAERS Safety Report 7465100-0 (Version None)
Quarter: 2011Q2

REPORT INFORMATION
  Report Type: 
  Country: None (occurrence: None)
  Receive Date: 20110428
  Receipt Date: 20110414
  Transmission Date: 20111010
  Serious: Yes (Hospitalization)
  Sender: FDA-Public Use
  Company Number: TCI2011A01483

PATIENT
  Age: 61 Year
  Sex: Male

DRUGS (8)
  1. ALPHA GLUCOSIDASE INHIBITORS [Concomitant]
  2. CALCIUM CHANNEL BLOCKERS [Concomitant]
  3. ALPHA-ADRENOCEPTOR BLOCKING AGENTS [Concomitant]
  4. ACE INHIBITOR NOS [Concomitant]
  5. ACTOS [Suspect]
     Indication: TYPE 2 DIABETES MELLITUS
     Dosage: 15 MG (15 MG, 1 D), PER ORAL
     Route: 048
     Dates: start: 20090831, end: 20100616
  6. ANGIOTENSIN II ANTAGONISTS [Concomitant]
  7. SULFONAMIDES, UREA DERIVATIVES [Concomitant]
  8. BIGUANIDES [Concomitant]

REACTIONS (1)
  - PROSTATE CANCER [None]
